FAERS Safety Report 7942307-7 (Version None)
Quarter: 2011Q4

REPORT INFORMATION
  Report Type: 
  Country: None (occurrence: None)
  Receive Date: 20111128
  Receipt Date: 20111118
  Transmission Date: 20120403
  Serious: No
  Sender: FDA-Public Use
  Company Number: US-ABBOTT-11P-163-0875616-00

PATIENT
  Sex: Male
  Weight: 97.61 kg

DRUGS (3)
  1. ANDROGEL [Suspect]
     Indication: BLOOD TESTOSTERONE DECREASED
     Route: 061
     Dates: start: 20110301, end: 20110801
  2. ANDROGEL [Suspect]
     Route: 061
     Dates: start: 20110801
  3. MULTI-VITAMIN [Concomitant]
     Indication: PRODUCT USED FOR UNKNOWN INDICATION

REACTIONS (3)
  - BLOOD TESTOSTERONE DECREASED [None]
  - INSOMNIA [None]
  - FATIGUE [None]
